FAERS Safety Report 11894330 (Version 1)
Quarter: 2016Q1

REPORT INFORMATION
  Report Type: Spontaneous
  Country: US (occurrence: None)
  Receive Date: 20160106
  Receipt Date: 20160106
  Transmission Date: 20160526
  Serious: Yes (Life-Threatening)
  Sender: FDA-Public Use
  Company Number: None

PATIENT
  Age: 67 Year
  Sex: Male
  Weight: 107.2 kg

DRUGS (1)
  1. WARFARIN [Suspect]
     Active Substance: WARFARIN
     Indication: ATRIAL FIBRILLATION
     Route: 048
     Dates: start: 20151201, end: 20151219

REACTIONS (10)
  - Vomiting [None]
  - Gastric haemorrhage [None]
  - International normalised ratio increased [None]
  - Nausea [None]
  - Abdominal pain [None]
  - Wheezing [None]
  - Hypotension [None]
  - Haemorrhage [None]
  - Bradycardia [None]
  - Cough [None]

NARRATIVE: CASE EVENT DATE: 20151220
